FAERS Safety Report 21454018 (Version 1)
Quarter: 2022Q4

REPORT INFORMATION
  Report Type: Spontaneous
  Country: US (occurrence: US)
  Receive Date: 20221013
  Receipt Date: 20221013
  Transmission Date: 20230113
  Serious: No
  Sender: FDA-Public Use
  Company Number: US-SANOFI-01314561

PATIENT
  Sex: Male

DRUGS (1)
  1. ADMELOG [Suspect]
     Active Substance: INSULIN LISPRO
     Indication: Diabetes mellitus
     Dosage: 14 IU
     Dates: start: 2012

REACTIONS (3)
  - Skin odour abnormal [Not Recovered/Not Resolved]
  - Breath odour [Not Recovered/Not Resolved]
  - Blood glucose decreased [Not Recovered/Not Resolved]
